FAERS Safety Report 5337311-1 (Version None)
Quarter: 2007Q2

REPORT INFORMATION
  Report Type: 
  Country: None (occurrence: None)
  Receive Date: 20070529
  Receipt Date: 20070517
  Transmission Date: 20071010
  Serious: Yes (Other)
  Sender: FDA-Public Use
  Company Number: US-PFIZER INC-2007040395

PATIENT
  Sex: Female
  Weight: 68.9 kg

DRUGS (12)
  1. CHANTIX [Suspect]
     Indication: SMOKING CESSATION THERAPY
  2. ADVAIR DISKUS 100/50 [Concomitant]
  3. IPRATROPIUM BROMIDE [Concomitant]
  4. ALBUTEROL [Concomitant]
  5. PULMICORT [Concomitant]
     Indication: ASTHMA
  6. DILTIAZEM [Concomitant]
     Indication: HYPERTENSION
  7. PAROXETINE [Concomitant]
     Indication: ANTIDEPRESSANT THERAPY
  8. ALPRAZOLAM [Concomitant]
     Indication: SLEEP DISORDER
  9. ALPRAZOLAM [Concomitant]
     Indication: PANIC ATTACK
  10. ZOCOR [Concomitant]
  11. SINGULAIR [Concomitant]
     Indication: ASTHMA
  12. OTHER ANTI-ASTHMATICS, INHALANTS [Concomitant]

REACTIONS (4)
  - ASTHENIA [None]
  - DRUG INEFFECTIVE [None]
  - DYSPNOEA [None]
  - SMOKER [None]
